FAERS Safety Report 23935659 (Version 1)
Quarter: 2024Q2

REPORT INFORMATION
  Report Type: Spontaneous
  Country: CL (occurrence: CL)
  Receive Date: 20240604
  Receipt Date: 20240604
  Transmission Date: 20240716
  Serious: Yes (Other)
  Sender: FDA-Public Use
  Company Number: CL-AMGEN-CHLSP2024108919

PATIENT
  Sex: Female

DRUGS (3)
  1. BLINCYTO [Suspect]
     Active Substance: BLINATUMOMAB
     Indication: Product used for unknown indication
     Dosage: UNK, STRENGTH: 35 MCG
     Route: 065
     Dates: start: 2024
  2. DEXAMETHASONE [Suspect]
     Active Substance: DEXAMETHASONE
     Indication: Product used for unknown indication
     Dosage: 20 MILLIGRAM
     Route: 065
     Dates: start: 2024, end: 2024
  3. DEXAMETHASONE [Suspect]
     Active Substance: DEXAMETHASONE
     Dosage: 5 MILLIGRAM
     Route: 065
     Dates: start: 2024

REACTIONS (2)
  - Cushing^s syndrome [Unknown]
  - Neurological symptom [Unknown]
